FAERS Safety Report 9012901 (Version 3)
Quarter: 2013Q1

REPORT INFORMATION
  Report Type: Spontaneous
  Country: CN (occurrence: CN)
  Receive Date: 20130114
  Receipt Date: 20130205
  Transmission Date: 20140127
  Serious: Yes (Other)
  Sender: FDA-Public Use
  Company Number: CN-JNJFOC-20130103682

PATIENT
  Sex: 0

DRUGS (1)
  1. TRAMADOL HYDROCHLORIDE [Suspect]
     Indication: PROCEDURAL PAIN
     Dosage: 2 CAPSULES IMMEDIATELY AFTER SURGERY
     Route: 048

REACTIONS (6)
  - Urinary retention [Unknown]
  - Oedema [Unknown]
  - Vertigo [Unknown]
  - Nausea [Unknown]
  - Vomiting [Unknown]
  - Pain [Unknown]
